FAERS Safety Report 21834166 (Version 1)
Quarter: 2023Q1

REPORT INFORMATION
  Report Type: Spontaneous
  Country: US (occurrence: None)
  Receive Date: 20230108
  Receipt Date: 20230108
  Transmission Date: 20230418
  Serious: No
  Sender: FDA-Public Use
  Company Number: US-ROCHE-3147045

PATIENT
  Sex: Male

DRUGS (8)
  1. HEMLIBRA [Suspect]
     Active Substance: EMICIZUMAB-KXWH
     Indication: Factor VIII deficiency
     Dosage: INJECT 270MG SUBCUTANEOUSLY EVERY 14 DAYS. USE ONE 150MG VIAL AND TWO 60MG VIALS PER DOSE
     Route: 058
  2. AMICAR [Concomitant]
     Active Substance: AMINOCAPROIC ACID
  3. TRANEXAMIC ACID [Concomitant]
     Active Substance: TRANEXAMIC ACID
  4. VOLTAREN [Concomitant]
     Active Substance: DICLOFENAC SODIUM
  5. TYLENOL EXTRA STRENGTH [Concomitant]
     Active Substance: ACETAMINOPHEN
  6. TRAMADOL HCL ER [Concomitant]
  7. CELEBREX [Concomitant]
     Active Substance: CELECOXIB
  8. TUSSIN CF MAX [Concomitant]
     Active Substance: DEXTROMETHORPHAN HYDROBROMIDE\GUAIFENESIN\PHENYLEPHRINE HYDROCHLORIDE

REACTIONS (1)
  - Haemorrhage [Unknown]
